FAERS Safety Report 18705638 (Version 1)
Quarter: 2021Q1

REPORT INFORMATION
  Report Type: Spontaneous
  Country: CN (occurrence: CN)
  Receive Date: 20210106
  Receipt Date: 20210106
  Transmission Date: 20210419
  Serious: Yes (Other)
  Sender: FDA-Public Use
  Company Number: CN-BEIGENE USA INC-BGN-2020-002901

PATIENT

DRUGS (5)
  1. RITUXIMAB. [Suspect]
     Active Substance: RITUXIMAB
     Indication: NON-HODGKIN^S LYMPHOMA
     Dosage: 700 MILLIGRAM
     Route: 041
     Dates: start: 20201128, end: 20201128
  2. CARBOPLATIN. [Suspect]
     Active Substance: CARBOPLATIN
     Indication: NON-HODGKIN^S LYMPHOMA
     Dosage: 600 MILLIGRAM
     Route: 041
     Dates: start: 20201128, end: 20201128
  3. BRUKINSA [Suspect]
     Active Substance: ZANUBRUTINIB
     Indication: NON-HODGKIN^S LYMPHOMA
     Dosage: 160 MILLIGRAM, BID
     Route: 048
     Dates: start: 20201128, end: 20201228
  4. IFOSFAMIDE. [Suspect]
     Active Substance: IFOSFAMIDE
     Indication: NON-HODGKIN^S LYMPHOMA
     Dosage: 2 GRAM, QD, D1?3
     Route: 041
     Dates: start: 20201128, end: 20201130
  5. ETOPOSIDE. [Suspect]
     Active Substance: ETOPOSIDE
     Indication: NON-HODGKIN^S LYMPHOMA
     Dosage: 150 MILLIGRAM, QD
     Route: 041
     Dates: start: 20201128, end: 20201130

REACTIONS (1)
  - Myelosuppression [Recovering/Resolving]

NARRATIVE: CASE EVENT DATE: 20201206
